FAERS Safety Report 7576971-1 (Version None)
Quarter: 2011Q2

REPORT INFORMATION
  Report Type: 
  Country: None (occurrence: None)
  Receive Date: 20110628
  Receipt Date: 20110118
  Transmission Date: 20111010
  Serious: Yes (Hospitalization, Other)
  Sender: FDA-Public Use
  Company Number: US-BAYER-201025524NA

PATIENT
  Age: 36 Year
  Sex: Female
  Weight: 72.562 kg

DRUGS (2)
  1. YAZ [Suspect]
     Indication: ORAL CONTRACEPTION
     Dosage: UNK
     Route: 048
     Dates: start: 20070809, end: 20090301
  2. YAZ [Suspect]
     Dosage: UNK
     Dates: start: 20090727, end: 20091014

REACTIONS (1)
  - MYOCARDIAL INFARCTION [None]
